FAERS Safety Report 9230708 (Version 4)
Quarter: 2013Q4

REPORT INFORMATION
  Report Type: Report from Study
  Country: BR (occurrence: BR)
  Receive Date: 20130415
  Receipt Date: 20131021
  Transmission Date: 20140711
  Serious: Yes (Life-Threatening, Hospitalization)
  Sender: FDA-Public Use
  Company Number: BR-NOVOPROD-354055

PATIENT
  Age: 61 Year
  Sex: Male
  Weight: 101.9 kg

DRUGS (3)
  1. LIRAGLUTIDE FLEXPEN [Suspect]
     Indication: TYPE 2 DIABETES MELLITUS
     Dosage: 1.8 MG, QD
     Route: 058
     Dates: start: 20110927, end: 20120614
  2. LIRAGLUTIDE FLEXPEN [Suspect]
     Dosage: 1.8 MG, QD
     Route: 058
     Dates: start: 20120716
  3. FUROSEMIDE [Concomitant]
     Indication: OEDEMA

REACTIONS (1)
  - Cardiac failure congestive [Recovered/Resolved]
